FAERS Safety Report 14655366 (Version 1)
Quarter: 2018Q1

REPORT INFORMATION
  Report Type: Spontaneous
  Country: US (occurrence: US)
  Receive Date: 20180319
  Receipt Date: 20180319
  Transmission Date: 20180509
  Serious: Yes (Other)
  Sender: FDA-Public Use
  Company Number: US-AUROBINDO-AUR-APL-2018-015556

PATIENT

DRUGS (2)
  1. METRONIDAZOLE. [Suspect]
     Active Substance: METRONIDAZOLE
     Indication: PRODUCT USED FOR UNKNOWN INDICATION
     Dosage: UNK
     Route: 048
  2. CEFTAROLINE [Suspect]
     Active Substance: CEFTAROLINE
     Indication: SKIN INFECTION
     Dosage: UNK
     Route: 065

REACTIONS (3)
  - Oral disorder [Unknown]
  - Rash [Unknown]
  - Dermatitis exfoliative generalised [Unknown]
